FAERS Safety Report 4597243-3 (Version None)
Quarter: 2005Q1

REPORT INFORMATION
  Report Type: 
  Country: None (occurrence: None)
  Receive Date: 20050301
  Receipt Date: 20040216
  Transmission Date: 20050727
  Serious: Yes (Hospitalization)
  Sender: FDA-Public Use
  Company Number: 2005032800

PATIENT
  Age: 76 Year
  Sex: Male

DRUGS (3)
  1. TAHOR (ATORVASTATIN) [Suspect]
     Indication: DYSLIPIDAEMIA
     Dosage: 10 MG (EVERY DAY), ORAL
     Route: 048
     Dates: start: 20040415, end: 20040930
  2. TRIMETAZIDINE HYDROCHLORIDE (TRIMETAZIDINE HYDROCHLORIDE) [Concomitant]
  3. RABEPRAZOLE SODIUM [Concomitant]

REACTIONS (2)
  - EOSINOPHILIA [None]
  - INTERSTITIAL LUNG DISEASE [None]
